FAERS Safety Report 19376724 (Version 1)
Quarter: 2021Q2

REPORT INFORMATION
  Report Type: Spontaneous
  Country: PT (occurrence: PT)
  Receive Date: 20210605
  Receipt Date: 20210605
  Transmission Date: 20210717
  Serious: Yes (Other)
  Sender: FDA-Public Use
  Company Number: PT-AUROBINDO-AUR-APL-2021-023220

PATIENT
  Age: 45 Year
  Sex: Female

DRUGS (1)
  1. VENLAFAXINE [Suspect]
     Active Substance: VENLAFAXINE HYDROCHLORIDE
     Indication: PRODUCT USED FOR UNKNOWN INDICATION
     Dosage: 37.5 MILLIGRAM, ONCE A DAY
     Route: 048

REACTIONS (16)
  - Presyncope [Unknown]
  - Hyperhidrosis [Unknown]
  - Heart rate irregular [Unknown]
  - Myalgia [Unknown]
  - Feeling abnormal [Unknown]
  - Tinnitus [Unknown]
  - Arthralgia [Unknown]
  - Drug interaction [Unknown]
  - Gastrooesophageal reflux disease [Unknown]
  - Dizziness [Unknown]
  - Fatigue [Unknown]
  - Headache [Unknown]
  - Confusional state [Unknown]
  - Tearfulness [Unknown]
  - Pyrexia [Unknown]
  - Vision blurred [Unknown]

NARRATIVE: CASE EVENT DATE: 20210327
